FAERS Safety Report 16244693 (Version 1)
Quarter: 2019Q2

REPORT INFORMATION
  Report Type: Report from Study
  Country: GB (occurrence: GB)
  Receive Date: 20190426
  Receipt Date: 20190426
  Transmission Date: 20190711
  Serious: Yes (Other)
  Sender: FDA-Public Use
  Company Number: GB-AMGEN-GBRSL2019062500

PATIENT
  Sex: Female

DRUGS (1)
  1. AMGEVITA [Suspect]
     Active Substance: ADALIMUMAB
     Indication: JUVENILE IDIOPATHIC ARTHRITIS
     Dosage: 80 MILLIGRAM, QWK
     Route: 058
     Dates: start: 20190314

REACTIONS (3)
  - Injection site erythema [Recovered/Resolved]
  - Injection site pain [Unknown]
  - Juvenile idiopathic arthritis [Unknown]
